FAERS Safety Report 8723541 (Version 2)
Quarter: 2013Q4

REPORT INFORMATION
  Report Type: Report from Study
  Country: US (occurrence: US)
  Receive Date: 20120814
  Receipt Date: 20131031
  Transmission Date: 20140711
  Serious: Yes (Hospitalization)
  Sender: FDA-Public Use
  Company Number: US-009507513-1204USA03834

PATIENT
  Age: 69 Year
  Sex: Male

DRUGS (8)
  1. VORINOSTAT [Suspect]
     Indication: PLASMA CELL MYELOMA
     Dosage: DAYS 1-7
     Route: 048
  2. VORINOSTAT [Suspect]
     Dosage: DAYS 15-21
     Route: 048
  3. LENALIDOMIDE [Suspect]
     Indication: PLASMA CELL MYELOMA
     Dosage: DAY 1-21
     Route: 048
  4. DEXAMETHASONE [Suspect]
     Indication: PLASMA CELL MYELOMA
     Dosage: DAY 1
     Route: 048
  5. DEXAMETHASONE [Suspect]
     Dosage: DAY 8
     Route: 048
  6. DEXAMETHASONE [Suspect]
     Dosage: DAY 15
     Route: 048
  7. DEXAMETHASONE [Suspect]
     Dosage: DAY 22
     Route: 048
  8. ASPIRIN [Concomitant]
     Dosage: 81 MG, UNK

REACTIONS (7)
  - Haematemesis [Unknown]
  - Syncope [Unknown]
  - Nausea [Unknown]
  - Vomiting [Unknown]
  - Asthenia [Unknown]
  - Diarrhoea [Unknown]
  - Epistaxis [Unknown]
